FAERS Safety Report 18505360 (Version 1)
Quarter: 2020Q4

REPORT INFORMATION
  Report Type: Other
  Country: IN (occurrence: IN)
  Receive Date: 20201116
  Receipt Date: 20201116
  Transmission Date: 20210114
  Serious: Yes (Other)
  Sender: FDA-Public Use
  Company Number: IN-NAARI PTE LIMITED-2095934

PATIENT
  Age: 20 Year
  Sex: Female

DRUGS (1)
  1. DESOGESTREL AND ETHINYL ESTRADIOL [Suspect]
     Active Substance: DESOGESTREL\ETHINYL ESTRADIOL
     Indication: POLYCYSTIC OVARIES
     Route: 048

REACTIONS (8)
  - Protein S deficiency [Recovering/Resolving]
  - Muscular weakness [Recovered/Resolved]
  - Cranial nerve palsies multiple [Recovered/Resolved]
  - Facial paresis [Recovered/Resolved]
  - Ataxia [Recovered/Resolved]
  - Cerebrovascular accident [Recovered/Resolved]
  - Gait disturbance [Recovered/Resolved]
  - Diplopia [Recovered/Resolved]
